FAERS Safety Report 23587931 (Version 1)
Quarter: 2024Q1

REPORT INFORMATION
  Report Type: Spontaneous
  Country: MY (occurrence: MY)
  Receive Date: 20240301
  Receipt Date: 20240301
  Transmission Date: 20240409
  Serious: Yes (Other)
  Sender: FDA-Public Use
  Company Number: MY-VISTAPHARM-2024-MY-000005

PATIENT
  Age: 57 Year
  Sex: Male

DRUGS (3)
  1. TELMISARTAN [Concomitant]
     Active Substance: TELMISARTAN
     Dosage: 80 MG DAILY
  2. ATORVASTATIN [Concomitant]
     Active Substance: ATORVASTATIN
     Dosage: 40 MG DAILY
  3. METFORMIN HYDROCHLORIDE [Suspect]
     Active Substance: METFORMIN HYDROCHLORIDE
     Indication: Diabetes mellitus
     Dosage: 500 MG TWICE DAILY

REACTIONS (1)
  - Erectile dysfunction [Unknown]
